FAERS Safety Report 11329668 (Version 2)
Quarter: 2015Q3

REPORT INFORMATION
  Report Type: Report from Study
  Country: VE (occurrence: VE)
  Receive Date: 20150803
  Receipt Date: 20150819
  Transmission Date: 20151125
  Serious: Yes (Other)
  Sender: FDA-Public Use
  Company Number: VE-ABBVIE-15K-178-1435281-00

PATIENT
  Age: 61 Year
  Sex: Female
  Weight: 62 kg

DRUGS (3)
  1. HUMIRA [Suspect]
     Active Substance: ADALIMUMAB
     Indication: PSORIASIS
     Route: 058
     Dates: start: 20110906, end: 2014
  2. ISONIAZIDA [Suspect]
     Active Substance: ISONIAZID
     Route: 065
     Dates: start: 201505, end: 201505
  3. ISONIAZIDA [Suspect]
     Active Substance: ISONIAZID
     Indication: TUBERCULIN TEST POSITIVE
     Route: 065
     Dates: start: 201502, end: 201503

REACTIONS (5)
  - Liver injury [Recovering/Resolving]
  - Tuberculin test positive [Recovering/Resolving]
  - Chikungunya virus infection [Recovered/Resolved]
  - Feeling abnormal [Unknown]
  - Hepatitis [Recovered/Resolved]

NARRATIVE: CASE EVENT DATE: 201411
